FAERS Safety Report 7877614-X (Version None)
Quarter: 2011Q4

REPORT INFORMATION
  Report Type: 
  Country: None (occurrence: None)
  Receive Date: 20111031
  Receipt Date: 20111020
  Transmission Date: 20120403
  Serious: Yes (Hospitalization)
  Sender: FDA-Public Use
  Company Number: CA-ASTRAZENECA-2011SE55872

PATIENT
  Age: 58 Year
  Sex: Male

DRUGS (6)
  1. OLMESARTAN MEDOXOMIL [Concomitant]
     Indication: BLOOD PRESSURE ABNORMAL
  2. NORVASC [Concomitant]
     Indication: BLOOD PRESSURE ABNORMAL
  3. PRILOSEC [Suspect]
     Indication: GASTROOESOPHAGEAL REFLUX DISEASE
     Route: 048
     Dates: start: 20070101, end: 20110701
  4. PRILOSEC [Suspect]
     Route: 048
     Dates: start: 20110801
  5. INDAPAMIDE [Concomitant]
     Indication: DIABETES MELLITUS
  6. NOVORAPID INSULIN [Concomitant]
     Indication: DIABETES MELLITUS

REACTIONS (1)
  - COELIAC DISEASE [None]
